FAERS Safety Report 20896391 (Version 1)
Quarter: 2022Q2

REPORT INFORMATION
  Report Type: Spontaneous
  Country: US (occurrence: None)
  Receive Date: 20220530
  Receipt Date: 20220530
  Transmission Date: 20220721
  Serious: Yes (Other)
  Sender: FDA-Public Use
  Company Number: None

PATIENT
  Age: 55 Year
  Sex: Male
  Weight: 72 kg

DRUGS (6)
  1. PAXLOVID [Suspect]
     Active Substance: NIRMATRELVIR\RITONAVIR
  2. NP THYROID [Concomitant]
     Active Substance: LEVOTHYROXINE\LIOTHYRONINE
  3. LEVOTHYROXINE [Concomitant]
     Active Substance: LEVOTHYROXINE
  4. BUPROPION [Concomitant]
     Active Substance: BUPROPION
  5. VITAMINS [Concomitant]
     Active Substance: VITAMINS
  6. COLACE [Concomitant]
     Active Substance: DOCUSATE SODIUM

REACTIONS (6)
  - COVID-19 [None]
  - Myalgia [None]
  - Fatigue [None]
  - Cough [None]
  - Rhinitis [None]
  - Headache [None]

NARRATIVE: CASE EVENT DATE: 20220527
